FAERS Safety Report 8026071-1 (Version None)
Quarter: 2012Q1

REPORT INFORMATION
  Report Type: 
  Country: None (occurrence: None)
  Receive Date: 20120105
  Receipt Date: 20111027
  Transmission Date: 20120608
  Serious: No
  Sender: FDA-Public Use
  Company Number: US-ABBOTT-11P-163-0834884-00

PATIENT
  Sex: Male
  Weight: 78.088 kg

DRUGS (2)
  1. SYNTHROID [Suspect]
     Indication: HYPOTHYROIDISM
     Dates: start: 20110602
  2. LITHIUM [Concomitant]
     Indication: BIPOLAR DISORDER

REACTIONS (5)
  - TREMOR [None]
  - DECREASED APPETITE [None]
  - CONSTIPATION [None]
  - AGITATION [None]
  - MUSCULAR WEAKNESS [None]
